FAERS Safety Report 9876025 (Version 1)
Quarter: 2014Q1

REPORT INFORMATION
  Report Type: Spontaneous
  Country: US (occurrence: None)
  Receive Date: 20140205
  Receipt Date: 20140205
  Transmission Date: 20141002
  Serious: No
  Sender: FDA-Public Use
  Company Number: None

PATIENT
  Age: 37 Year
  Sex: Female
  Weight: 74.39 kg

DRUGS (3)
  1. PREDNISOLONE ACETATE 1% [Suspect]
     Indication: ANTIINFLAMMATORY THERAPY
     Dosage: 1 DROP  HOURLY  OPHTHALMIC
     Route: 047
     Dates: start: 20140127, end: 20140204
  2. IBUPROFEN [Concomitant]
  3. CYCLOBENZAPRINE [Concomitant]

REACTIONS (1)
  - Drug effect decreased [None]
